FAERS Safety Report 9788052 (Version 1)
Quarter: 2013Q4

REPORT INFORMATION
  Report Type: Spontaneous
  Country: US (occurrence: None)
  Receive Date: 20131227
  Receipt Date: 20131227
  Transmission Date: 20140711
  Serious: Yes (Hospitalization)
  Sender: FDA-Public Use
  Company Number: None

PATIENT
  Age: 72 Year
  Sex: Male
  Weight: 107.3 kg

DRUGS (9)
  1. METHOTREXATE [Suspect]
     Indication: CHEMOTHERAPY
     Dosage: 1500MG=600ML Q2WK IVPB
     Route: 040
  2. AMIODARONE [Concomitant]
  3. ASA [Concomitant]
  4. LIPITOR [Concomitant]
  5. LEVOTHYROXINE [Concomitant]
  6. MVI [Concomitant]
  7. METOPROLOL [Concomitant]
  8. TAMSULOSIN [Concomitant]
  9. TESTOSTERONE [Concomitant]

REACTIONS (1)
  - Renal failure acute [None]
